FAERS Safety Report 10444508 (Version 1)
Quarter: 2014Q3

REPORT INFORMATION
  Report Type: Spontaneous
  Country: GB (occurrence: GB)
  Receive Date: 20140910
  Receipt Date: 20140910
  Transmission Date: 20150326
  Serious: Yes (Death)
  Sender: FDA-Public Use
  Company Number: GB-JNJFOC-20140900796

PATIENT
  Age: 31 Year
  Sex: Female

DRUGS (7)
  1. ARIPIPRAZOLE [Suspect]
     Active Substance: ARIPIPRAZOLE
     Indication: SCHIZOPHRENIA
     Dosage: 30 (UNITS UNSPECIFIED)
     Route: 048
     Dates: start: 201401, end: 20140607
  2. NICOTINE. [Concomitant]
     Active Substance: NICOTINE
     Route: 065
  3. OILATUM [Concomitant]
     Route: 065
  4. PARACETAMOL [Concomitant]
     Active Substance: ACETAMINOPHEN
     Route: 065
  5. FULTIUM D3 [Concomitant]
     Route: 065
  6. VITAMIN C [Concomitant]
     Active Substance: ASCORBIC ACID
     Route: 065
  7. NORETHINDRONE AND ETHINYL ESTRADIOL [Suspect]
     Active Substance: ETHINYL ESTRADIOL\NORETHINDRONE
     Indication: AMENORRHOEA
     Route: 048
     Dates: start: 20140430, end: 20140607

REACTIONS (3)
  - Sudden death [Fatal]
  - Unresponsive to stimuli [Not Recovered/Not Resolved]
  - Off label use [Unknown]

NARRATIVE: CASE EVENT DATE: 20140607
